FAERS Safety Report 4282179-8 (Version None)
Quarter: 2004Q1

REPORT INFORMATION
  Report Type: 
  Country: None (occurrence: None)
  Receive Date: 20040107
  Receipt Date: 20030910
  Transmission Date: 20041129
  Serious: No
  Sender: FDA-Public Use
  Company Number: A03200302114

PATIENT
  Age: 39 Year
  Sex: Female
  Weight: 97.0698 kg

DRUGS (3)
  1. ARIXTRA [Suspect]
     Indication: ARTHROSCOPY
     Dosage: 2.5 MG QD - SUBCUTANEOUS
     Route: 058
     Dates: start: 20030722, end: 20030801
  2. ARIXTRA [Suspect]
     Indication: THROMBOSIS PROPHYLAXIS
     Dosage: 2.5 MG QD - SUBCUTANEOUS
     Route: 058
     Dates: start: 20030722, end: 20030801
  3. HYDROCODONE/APAP [Concomitant]

REACTIONS (1)
  - VAGINAL HAEMORRHAGE [None]
